FAERS Safety Report 4276752-0 (Version None)
Quarter: 2004Q1

REPORT INFORMATION
  Report Type: 
  Country: None (occurrence: None)
  Receive Date: 20040120
  Receipt Date: 20040107
  Transmission Date: 20041129
  Serious: No
  Sender: FDA-Public Use
  Company Number: 2003SE04291

PATIENT
  Age: 43 Year
  Sex: Female

DRUGS (2)
  1. NEXIUM [Suspect]
     Indication: DIAPHRAGMATIC HERNIA
     Dosage: 20 MG QD PO
     Route: 048
     Dates: start: 20030826, end: 20030831
  2. NEXIUM [Suspect]
     Indication: GASTRITIS
     Dosage: 20 MG QD PO
     Route: 048
     Dates: start: 20030826, end: 20030831

REACTIONS (4)
  - ALOPECIA [None]
  - DRUG TOXICITY [None]
  - LICHEN PLANUS [None]
  - PRURITUS [None]
